FAERS Safety Report 11155491 (Version 1)
Quarter: 2015Q2

REPORT INFORMATION
  Report Type: Spontaneous
  Country: US (occurrence: US)
  Receive Date: 20150602
  Receipt Date: 20150602
  Transmission Date: 20150821
  Serious: Yes (Death)
  Sender: FDA-Public Use
  Company Number: US-BAYER-2015-283219

PATIENT
  Age: 27 Year
  Sex: Female

DRUGS (2)
  1. YASMIN [Suspect]
     Active Substance: DROSPIRENONE\ETHINYL ESTRADIOL
     Dosage: UNK
     Dates: start: 20020729, end: 20110308
  2. YAZ [Suspect]
     Active Substance: DROSPIRENONE\ETHINYL ESTRADIOL
     Dosage: UNK
     Dates: start: 20020729, end: 20110308

REACTIONS (8)
  - Injury [Fatal]
  - Anhedonia [None]
  - Pain [Fatal]
  - Deep vein thrombosis [Fatal]
  - Fear of disease [None]
  - Anxiety [None]
  - Psychological trauma [None]
  - Pulmonary embolism [Fatal]
